FAERS Safety Report 16883556 (Version 2)
Quarter: 2020Q1

REPORT INFORMATION
  Report Type: Spontaneous
  Country: CA (occurrence: CA)
  Receive Date: 20191004
  Receipt Date: 20200123
  Transmission Date: 20200409
  Serious: Yes (Other)
  Sender: FDA-Public Use
  Company Number: CA-ORION CORPORATION ORION PHARMA-TREX2019-3818

PATIENT
  Age: 82 Year
  Sex: Female

DRUGS (14)
  1. METHOTREXATE (TRADE NAME UNKNOWN) [Suspect]
     Active Substance: METHOTREXATE
     Route: 065
  2. FOLIC ACID. [Concomitant]
     Active Substance: FOLIC ACID
     Route: 065
  3. METHOTREXATE (TRADE NAME UNKNOWN) [Suspect]
     Active Substance: METHOTREXATE
     Route: 065
  4. AMLODIPINE [Concomitant]
     Active Substance: AMLODIPINE BESYLATE
     Route: 065
  5. PLAQUENIL [Concomitant]
     Active Substance: HYDROXYCHLOROQUINE SULFATE
     Route: 065
  6. CODEINE [Concomitant]
     Active Substance: CODEINE
     Route: 065
  7. MORPHINE SULFATE. [Concomitant]
     Active Substance: MORPHINE SULFATE
     Route: 065
     Dates: start: 201909
  8. CALCIUM [Concomitant]
     Active Substance: CALCIUM
     Route: 065
  9. PREDNISONE. [Concomitant]
     Active Substance: PREDNISONE
     Route: 065
  10. SYNTHROID [Concomitant]
     Active Substance: LEVOTHYROXINE SODIUM
     Route: 065
  11. METHOTREXATE (TRADE NAME UNKNOWN) [Suspect]
     Active Substance: METHOTREXATE
     Indication: PRODUCT USED FOR UNKNOWN INDICATION
     Route: 065
  12. SUPEUDOL [Concomitant]
     Active Substance: OXYCODONE HYDROCHLORIDE
     Route: 065
  13. OXYCODONE [Concomitant]
     Active Substance: OXYCODONE
     Route: 065
  14. VITAMIN D [Concomitant]
     Active Substance: VITAMIN D NOS
     Route: 065

REACTIONS (11)
  - Vomiting [Unknown]
  - Drug ineffective [Unknown]
  - Loss of consciousness [Unknown]
  - Pneumonia [Unknown]
  - Nausea [Unknown]
  - Peripheral swelling [Unknown]
  - Pain [Unknown]
  - Neck pain [Unknown]
  - Pain in extremity [Unknown]
  - Abdominal pain upper [Unknown]
  - Drug intolerance [Unknown]

NARRATIVE: CASE EVENT DATE: 2019
